FAERS Safety Report 6696466-7 (Version None)
Quarter: 2010Q2

REPORT INFORMATION
  Report Type: 
  Country: None (occurrence: None)
  Receive Date: 20100426
  Receipt Date: 20090922
  Transmission Date: 20101027
  Serious: No
  Sender: FDA-Public Use
  Company Number: A0809142A

PATIENT
  Age: 32 Year
  Sex: Female

DRUGS (1)
  1. ONDANSETRON [Suspect]
     Indication: DRUG USE FOR UNKNOWN INDICATION
     Route: 042
     Dates: start: 20090922, end: 20090922

REACTIONS (3)
  - ABNORMAL SENSATION IN EYE [None]
  - ACCIDENTAL EXPOSURE [None]
  - EYE IRRIGATION [None]
